FAERS Safety Report 15371368 (Version 1)
Quarter: 2018Q3

REPORT INFORMATION
  Report Type: Spontaneous
  Country: US (occurrence: US)
  Receive Date: 20180911
  Receipt Date: 20180911
  Transmission Date: 20181010
  Serious: Yes (Hospitalization)
  Sender: FDA-Public Use
  Company Number: US-TEVA-2018-US-953095

PATIENT
  Age: 67 Year
  Sex: Female

DRUGS (1)
  1. CLONAZEPAM. [Suspect]
     Active Substance: CLONAZEPAM
     Route: 065

REACTIONS (10)
  - Cerebral disorder [Unknown]
  - Crying [Unknown]
  - Feeling jittery [Unknown]
  - Cold sweat [Unknown]
  - Nausea [Unknown]
  - Headache [Unknown]
  - Mental impairment [Unknown]
  - Malaise [Unknown]
  - Balance disorder [Unknown]
  - Disturbance in attention [Unknown]
